FAERS Safety Report 9176806 (Version 1)
Quarter: 2013Q1

REPORT INFORMATION
  Report Type: Spontaneous
  Country: US (occurrence: None)
  Receive Date: 20130320
  Receipt Date: 20130320
  Transmission Date: 20140127
  Serious: No
  Sender: FDA-Public Use
  Company Number: None

PATIENT
  Age: 35 Year
  Sex: Female
  Weight: 86.64 kg

DRUGS (1)
  1. CLARITHROMYCIN [Suspect]
     Route: 048
     Dates: start: 20130305, end: 20130315

REACTIONS (3)
  - Urticaria [None]
  - Rash [None]
  - Fungal infection [None]
